FAERS Safety Report 10068569 (Version 3)
Quarter: 2014Q2

REPORT INFORMATION
  Report Type: Report from Study
  Country: US (occurrence: US)
  Receive Date: 20140409
  Receipt Date: 20140513
  Transmission Date: 20141212
  Serious: Yes (Hospitalization)
  Sender: FDA-Public Use
  Company Number: US-TEVA-473977USA

PATIENT
  Age: 64 Year
  Sex: Male
  Weight: 112.2 kg

DRUGS (12)
  1. BENDAMUSTINE [Suspect]
     Indication: MANTLE CELL LYMPHOMA
     Route: 042
     Dates: end: 20130704
  2. RITUXIMAB [Suspect]
     Indication: MANTLE CELL LYMPHOMA
     Route: 042
     Dates: end: 20130713
  3. IBRUTINIB [Suspect]
     Indication: MANTLE CELL LYMPHOMA
     Dosage: 420 MILLIGRAM DAILY;
     Route: 048
     Dates: start: 20130206, end: 20140324
  4. IBRUTINIB [Suspect]
     Dates: start: 20140328
  5. ZOLPIDEM [Concomitant]
     Route: 048
  6. TAMSULOSIN [Concomitant]
     Route: 048
  7. ALLOPURINOL [Concomitant]
     Route: 048
  8. ACYCLOVIR                          /00587301/ [Concomitant]
     Route: 048
  9. PRIVIGEN                           /00025201/ [Concomitant]
     Route: 042
  10. ATIVAN [Concomitant]
     Route: 048
  11. PROCHLORPERAZINE [Concomitant]
     Route: 048
  12. METFORMIN [Concomitant]
     Route: 048

REACTIONS (1)
  - Pleural effusion [Unknown]
